FAERS Safety Report 12964687 (Version 1)
Quarter: 2016Q4

REPORT INFORMATION
  Report Type: Report from Study
  Country: US (occurrence: US)
  Receive Date: 20161122
  Receipt Date: 20161122
  Transmission Date: 20170207
  Serious: Yes (Other)
  Sender: FDA-Public Use
  Company Number: US-CELGENEUS-USA-2016112268

PATIENT

DRUGS (2)
  1. ABRAXANE [Suspect]
     Active Substance: PACLITAXEL
     Indication: NEOPLASM
     Dosage: 100 MILLIGRAM/SQ. METER
     Route: 041
  2. SIROLIMUS. [Suspect]
     Active Substance: SIROLIMUS
     Indication: NEOPLASM
     Dosage: 5-60MG
     Route: 041

REACTIONS (43)
  - Hot flush [Unknown]
  - Constipation [Unknown]
  - Dry mouth [Unknown]
  - Fatigue [Unknown]
  - Hypokalaemia [Unknown]
  - Hypernatraemia [Unknown]
  - Alopecia [Unknown]
  - Nausea [Unknown]
  - Dysgeusia [Unknown]
  - Blood alkaline phosphatase increased [Unknown]
  - Hypertriglyceridaemia [Unknown]
  - Hypoxia [Unknown]
  - Lymphopenia [Unknown]
  - Deep vein thrombosis [Unknown]
  - Dyspnoea [Unknown]
  - Hypophosphataemia [Unknown]
  - Pruritus [Unknown]
  - Rash [Unknown]
  - Blood cholesterol increased [Unknown]
  - Hyperhidrosis [Unknown]
  - Anaemia [Unknown]
  - Pericardial effusion [Unknown]
  - Leukopenia [Unknown]
  - Hypocalcaemia [Unknown]
  - Mucosal inflammation [Unknown]
  - Decreased appetite [Unknown]
  - Dyspepsia [Unknown]
  - Headache [Unknown]
  - Diarrhoea [Unknown]
  - Transaminases increased [Unknown]
  - Hyperglycaemia [Unknown]
  - Weight decreased [Unknown]
  - Neutropenia [Unknown]
  - Acidosis [Unknown]
  - Vomiting [Unknown]
  - Thrombocytopenia [Unknown]
  - Neuropathy peripheral [Unknown]
  - Oedema [Unknown]
  - Musculoskeletal pain [Unknown]
  - Hypoalbuminaemia [Unknown]
  - Dizziness [Unknown]
  - Cough [Unknown]
  - Disease progression [Unknown]
